FAERS Safety Report 5106993-1 (Version None)
Quarter: 2006Q3

REPORT INFORMATION
  Report Type: 
  Country: None (occurrence: None)
  Receive Date: 20060913
  Receipt Date: 20060825
  Transmission Date: 20061208
  Serious: Yes (Hospitalization, Other)
  Sender: FDA-Public Use
  Company Number: USA040874428

PATIENT
  Age: 59 Year
  Sex: Female
  Weight: 53.6 kg

DRUGS (19)
  1. EVISTA [Suspect]
     Indication: OSTEOPOROSIS
     Dosage: DAILY (1/D)
     Dates: start: 20030101, end: 20040801
  2. EVISTA [Suspect]
     Indication: OSTEOPOROSIS
     Dosage: DAILY (1/D)
     Dates: start: 20050411, end: 20050418
  3. ZYPREXA [Suspect]
     Dates: start: 20030101
  4. FORTEO [Suspect]
     Indication: OSTEOPOROSIS
     Dosage: 20 UG, DAILY (1/D)
     Dates: start: 20040801, end: 20050423
  5. FORTEO [Suspect]
     Indication: OSTEOPOROSIS
     Dosage: 20 UG, DAILY (1/D)
     Dates: end: 20060601
  6. FORTEO [Concomitant]
  7. CALCIUM GLUCONATE [Concomitant]
  8. ACIPHEX [Concomitant]
  9. MORPHINE [Concomitant]
  10. XANAX (ALPRAZOLAM DUM) [Concomitant]
  11. MIACALCIN [Concomitant]
  12. VALIUM [Concomitant]
  13. BACLOFEN [Concomitant]
  14. ZOFRAN [Concomitant]
  15. VITAMIN B COMPLEX CAP [Concomitant]
  16. LEVBID (HYOSCYAMINE SULFATE) [Concomitant]
  17. ASCORBIC ACID [Concomitant]
  18. CITRACAL PLUS [Concomitant]
  19. ACTIQ (SUGAR-FREE) [Concomitant]

REACTIONS (40)
  - ANXIETY [None]
  - ARTHRALGIA [None]
  - ASTHENIA [None]
  - BLISTER [None]
  - BLOOD GLUCOSE INCREASED [None]
  - BONE DENSITY DECREASED [None]
  - BONE PAIN [None]
  - CHILLS [None]
  - DECREASED APPETITE [None]
  - DIARRHOEA [None]
  - DISORIENTATION [None]
  - DIVERTICULUM [None]
  - DRUG INEFFECTIVE [None]
  - ERYTHEMA [None]
  - FALL [None]
  - FATIGUE [None]
  - GAIT DISTURBANCE [None]
  - HYPERSENSITIVITY [None]
  - INFLUENZA [None]
  - JOINT SWELLING [None]
  - MALAISE [None]
  - METRORRHAGIA [None]
  - MOBILITY DECREASED [None]
  - MUSCULAR WEAKNESS [None]
  - MUSCULOSKELETAL PAIN [None]
  - NAUSEA [None]
  - NONSPECIFIC REACTION [None]
  - OSTEOPENIA [None]
  - OSTEOPOROSIS [None]
  - PAIN [None]
  - PHARMACEUTICAL PRODUCT COMPLAINT [None]
  - PROCEDURAL PAIN [None]
  - RASH [None]
  - RASH ERYTHEMATOUS [None]
  - RASH GENERALISED [None]
  - RASH PRURITIC [None]
  - SKIN DISORDER [None]
  - SPINAL FUSION SURGERY [None]
  - URINE CALCIUM INCREASED [None]
  - WEIGHT DECREASED [None]
